FAERS Safety Report 7654116-7 (Version None)
Quarter: 2011Q3

REPORT INFORMATION
  Report Type: 
  Country: None (occurrence: None)
  Receive Date: 20110803
  Receipt Date: 20110731
  Transmission Date: 20111222
  Serious: Yes (Death)
  Sender: FDA-Public Use
  Company Number: PHHY2011NL69017

PATIENT
  Sex: Male

DRUGS (2)
  1. ZOMETA [Suspect]
     Indication: RENAL CELL CARCINOMA
     Dosage: 4 MG/5 ML,
     Route: 042
     Dates: start: 20080902
  2. ZOMETA [Suspect]
     Dosage: 4 MG/5 ML,
     Dates: start: 20110705

REACTIONS (1)
  - EUTHANASIA [None]
